FAERS Safety Report 17583213 (Version 2)
Quarter: 2020Q2

REPORT INFORMATION
  Report Type: Spontaneous
  Country: US (occurrence: US)
  Receive Date: 20200326
  Receipt Date: 20200421
  Transmission Date: 20200713
  Serious: Yes (Death, Life-Threatening, Hospitalization, Other)
  Sender: FDA-Public Use
  Company Number: US-AUROBINDO-AUR-APL-2020-015070

PATIENT
  Sex: Male

DRUGS (1)
  1. AMIODARONE HYDROCHLORIDE 200 MG TABLET [Suspect]
     Active Substance: AMIODARONE HYDROCHLORIDE
     Indication: ATRIAL FIBRILLATION
     Dosage: UNK
     Route: 065

REACTIONS (10)
  - Wheezing [Fatal]
  - Respiratory failure [Fatal]
  - Pulmonary fibrosis [Fatal]
  - Dyspnoea [Fatal]
  - Cough [Fatal]
  - Chest pain [Fatal]
  - Off label use [Unknown]
  - Fatigue [Fatal]
  - Asthenia [Fatal]
  - Oedema [Unknown]

NARRATIVE: CASE EVENT DATE: 201708
